FAERS Safety Report 23045829 (Version 1)
Quarter: 2023Q4

REPORT INFORMATION
  Report Type: Spontaneous
  Country: FR (occurrence: FR)
  Receive Date: 20231009
  Receipt Date: 20231009
  Transmission Date: 20240109
  Serious: Yes (Death, Life-Threatening, Other)
  Sender: FDA-Public Use
  Company Number: FR-AFSSAPS-AN2023000838

PATIENT
  Age: 64 Year
  Sex: Male
  Weight: 45 kg

DRUGS (10)
  1. PANTOPRAZOLE SODIUM [Suspect]
     Active Substance: PANTOPRAZOLE SODIUM
     Indication: Gastrointestinal disorder
     Dosage: DOSE DESCRIPTION : 40 MG, QD
     Route: 048
     Dates: start: 20210123
  2. ACETAMINOPHEN [Suspect]
     Active Substance: ACETAMINOPHEN
     Indication: Pain
     Dosage: DOSE DESCRIPTION : 1 DF, AS NECESSARY
     Route: 048
     Dates: start: 20201127
  3. OXAZEPAM [Suspect]
     Active Substance: OXAZEPAM
     Indication: Schizophrenia
     Dosage: DOSE DESCRIPTION : 50 MG, QD
     Route: 048
     Dates: start: 20201127
  4. LORMETAZEPAM [Suspect]
     Active Substance: LORMETAZEPAM
     Indication: Sleep disorder
     Dosage: DOSE DESCRIPTION : 2 MG, QD
     Route: 048
     Dates: start: 20201127
  5. LEVOMEPROMAZINE [Suspect]
     Active Substance: LEVOMEPROMAZINE
     Indication: Schizophrenia
     Dosage: DOSE DESCRIPTION : 75 MG, QD
     Route: 048
     Dates: start: 20201127
  6. QUETIAPINE FUMARATE [Suspect]
     Active Substance: QUETIAPINE FUMARATE
     Indication: Schizophrenia
     Dosage: DOSE DESCRIPTION : 400 MG, QD
     Route: 048
     Dates: start: 20201127, end: 20220203
  7. INSULIN GLULISINE [Suspect]
     Active Substance: INSULIN GLULISINE
     Indication: Type 2 diabetes mellitus
     Dosage: DOSE DESCRIPTION : 24 IU, QD
     Route: 058
     Dates: start: 20201127
  8. INSULIN GLARGINE [Suspect]
     Active Substance: INSULIN GLARGINE
     Indication: Type 2 diabetes mellitus
     Dosage: DOSE DESCRIPTION : 4 IU, QD
     Route: 058
     Dates: start: 20201201
  9. TROPATEPINE [Suspect]
     Active Substance: TROPATEPINE
     Indication: Prophylaxis
     Dosage: DOSE DESCRIPTION : 20 MG, QD
     Route: 048
     Dates: start: 20210222
  10. VILDAGLIPTIN [Suspect]
     Active Substance: VILDAGLIPTIN
     Indication: Type 2 diabetes mellitus
     Dosage: DOSE DESCRIPTION : 100 MG, QD
     Route: 048
     Dates: start: 20210222

REACTIONS (1)
  - Pancreatic carcinoma [Fatal]

NARRATIVE: CASE EVENT DATE: 20230610
